FAERS Safety Report 9164943 (Version 2)
Quarter: 2013Q2

REPORT INFORMATION
  Report Type: Spontaneous
  Country: US (occurrence: US)
  Receive Date: 20130315
  Receipt Date: 20130508
  Transmission Date: 20140414
  Serious: No
  Sender: FDA-Public Use
  Company Number: US-PFIZER INC-2013086611

PATIENT
  Sex: Female

DRUGS (1)
  1. XANAX XR [Suspect]
     Dosage: 0.25 MG, UNK

REACTIONS (3)
  - Drug ineffective [Unknown]
  - Tremor [Unknown]
  - Chills [Unknown]
